FAERS Safety Report 6675492-8 (Version None)
Quarter: 2010Q2

REPORT INFORMATION
  Report Type: 
  Country: None (occurrence: None)
  Receive Date: 20100409
  Receipt Date: 20100401
  Transmission Date: 20101027
  Serious: Yes (Life-Threatening, Hospitalization)
  Sender: FDA-Public Use
  Company Number: B0644730A

PATIENT
  Age: 64 Year
  Sex: Female
  Weight: 48 kg

DRUGS (8)
  1. ONDANSETRON [Suspect]
     Route: 042
     Dates: start: 20100219
  2. GEMCITABINE HCL [Suspect]
     Indication: NON-SMALL CELL LUNG CANCER METASTATIC
     Route: 042
     Dates: start: 20100219, end: 20100219
  3. METOCLOPRAMIDE HYDROCHLORIDE [Suspect]
     Route: 042
  4. DEXAMETHASONE [Suspect]
     Route: 042
  5. CARBOPLATIN [Suspect]
  6. PARACETAMOL [Concomitant]
  7. TRAMADOL HYDROCHLORIDE [Concomitant]
  8. IBRUPROFEN [Concomitant]

REACTIONS (2)
  - HEPATITIS [None]
  - MALAISE [None]
